FAERS Safety Report 4535058-2 (Version None)
Quarter: 2004Q4

REPORT INFORMATION
  Report Type: 
  Country: None (occurrence: None)
  Receive Date: 20041222
  Receipt Date: 20041118
  Transmission Date: 20050328
  Serious: Yes (Other)
  Sender: FDA-Public Use
  Company Number: US-ROCHE-386743

PATIENT
  Age: 46 Year
  Sex: Female
  Weight: 56.7 kg

DRUGS (2)
  1. KLONOPIN [Suspect]
     Indication: BALANCE DISORDER
     Route: 048
     Dates: start: 19890615
  2. SYNTHROID [Concomitant]

REACTIONS (5)
  - DIZZINESS [None]
  - DRUG WITHDRAWAL SYNDROME [None]
  - LOSS OF CONSCIOUSNESS [None]
  - THYROID DISORDER [None]
  - VERTIGO [None]
